FAERS Safety Report 5684926-7 (Version None)
Quarter: 2008Q1

REPORT INFORMATION
  Report Type: 
  Country: None (occurrence: None)
  Receive Date: 20080328
  Receipt Date: 20071220
  Transmission Date: 20080703
  Serious: Yes (Other)
  Sender: FDA-Public Use
  Company Number: US-BRISTOL-MYERS SQUIBB COMPANY-14021745

PATIENT
  Age: 60 Year
  Sex: Male
  Weight: 66 kg

DRUGS (5)
  1. ERBITUX [Suspect]
     Indication: COLORECTAL CANCER METASTATIC
     Dosage: 1ST DOSE:400 MG/M2,2ND AND 3RD DOSE-250MG/M2.
     Route: 042
  2. CPT-11 [Concomitant]
  3. BENADRYL [Concomitant]
  4. AVASTIN [Concomitant]
  5. FLUOROURACIL [Concomitant]

REACTIONS (1)
  - SKIN EXFOLIATION [None]
